FAERS Safety Report 7758697-4 (Version None)
Quarter: 2011Q3

REPORT INFORMATION
  Report Type: 
  Country: None (occurrence: None)
  Receive Date: 20110919
  Receipt Date: 20100602
  Transmission Date: 20111222
  Serious: No
  Sender: FDA-Public Use
  Company Number: US-BAYER-201024643NA

PATIENT
  Age: 47 Year
  Sex: Female

DRUGS (1)
  1. MIRENA [Suspect]
     Indication: CONTRACEPTION
     Dosage: 20 MCG/24HR, UNK
     Dates: start: 20050615

REACTIONS (4)
  - DEVICE DIFFICULT TO USE [None]
  - DEVICE DISLOCATION [None]
  - AMENORRHOEA [None]
  - PROCEDURAL PAIN [None]
